FAERS Safety Report 17370204 (Version 1)
Quarter: 2020Q1

REPORT INFORMATION
  Report Type: Spontaneous
  Country: ES (occurrence: ES)
  Receive Date: 20200205
  Receipt Date: 20200205
  Transmission Date: 20200409
  Serious: Yes (Hospitalization, Other)
  Sender: FDA-Public Use
  Company Number: ES-SA-2020SA023546

PATIENT
  Age: 17 Year
  Sex: Female
  Weight: 46.7 kg

DRUGS (4)
  1. LANTUS SOLOSTAR [Suspect]
     Active Substance: INSULIN GLARGINE
     Indication: TYPE 1 DIABETES MELLITUS
     Dosage: 20 IU, QD
     Route: 065
     Dates: start: 20190528, end: 20191202
  2. EUTIROX [Interacting]
     Active Substance: LEVOTHYROXINE SODIUM
     Dosage: 225 UNK
     Route: 065
     Dates: start: 20190924
  3. NOVORAPID [Interacting]
     Active Substance: INSULIN ASPART
     Indication: TYPE 1 DIABETES MELLITUS
     Dosage: 45 IU, QD
     Route: 065
     Dates: start: 20190121, end: 20191202
  4. EUTIROX [Interacting]
     Active Substance: LEVOTHYROXINE SODIUM
     Indication: HYPOTHYROIDISM
     Dosage: 200 UG
     Route: 065
     Dates: start: 20190924

REACTIONS (2)
  - Diabetic ketoacidosis [Recovered/Resolved]
  - Diabetic ketoacidosis [Recovered/Resolved]

NARRATIVE: CASE EVENT DATE: 20191024
